FAERS Safety Report 21179740 (Version 1)
Quarter: 2022Q3

REPORT INFORMATION
  Report Type: Spontaneous
  Country: None (occurrence: DE)
  Receive Date: 20220805
  Receipt Date: 20220805
  Transmission Date: 20221026
  Serious: Yes (Hospitalization)
  Sender: FDA-Public Use
  Company Number: DE-HILL DERMACEUTICALS, INC.-2131562

PATIENT
  Age: 62 Year
  Sex: Male

DRUGS (7)
  1. TOLAK [Suspect]
     Active Substance: FLUOROURACIL
  2. OXALIPLATIN [Suspect]
     Active Substance: OXALIPLATIN
  3. BEVACIZUMAB [Suspect]
     Active Substance: BEVACIZUMAB
  4. LEUCOVORIN CALCIUM [Concomitant]
     Active Substance: LEUCOVORIN CALCIUM
  5. TORSEMIDE [Concomitant]
     Active Substance: TORSEMIDE
  6. ALLOPURINOL [Concomitant]
     Active Substance: ALLOPURINOL
  7. SPIRONOLACTONE [Concomitant]
     Active Substance: SPIRONOLACTONE

REACTIONS (6)
  - Pneumonia [Unknown]
  - Sepsis [Unknown]
  - Cytopenia [Unknown]
  - Pyrexia [Unknown]
  - Dyspnoea [Unknown]
  - Chills [Unknown]
